FAERS Safety Report 8847603 (Version 1)
Quarter: 2012Q4

REPORT INFORMATION
  Report Type: 
  Country: US (occurrence: US)
  Receive Date: 20121018
  Receipt Date: 20121018
  Transmission Date: 20130627
  Serious: Yes (Death, Hospitalization)
  Sender: FDA-Public Use
  Company Number: US-ELI_LILLY_AND_COMPANY-US201210004673

PATIENT
  Age: 76 Year
  Sex: Male
  Weight: 88 kg

DRUGS (13)
  1. HUMALOG 25% LISPRO, 75% NPL [Suspect]
     Dosage: 35 u, bid
     Route: 058
     Dates: start: 20120621
  2. RAPAFLO [Concomitant]
     Indication: BENIGN PROSTATIC HYPERPLASIA
     Dosage: 8 mg, qd
     Route: 048
     Dates: start: 20120621
  3. LOSARTAN POTASSIUM [Concomitant]
     Dosage: 100 mg, qd
     Route: 048
     Dates: start: 20120531
  4. PREDNISONE [Concomitant]
     Dosage: 10 mg, qd
     Route: 048
     Dates: start: 20120531
  5. LOVASTATIN [Concomitant]
     Dosage: 80 mg, qd
     Route: 048
     Dates: start: 20100831
  6. METFORMIN [Concomitant]
     Dosage: 1000 mg, bid
     Route: 048
     Dates: start: 20100831
  7. METOPROLOL [Concomitant]
     Dosage: 50 mg, bid
     Route: 048
     Dates: start: 20120221
  8. VENTOLIN                                /SCH/ [Concomitant]
     Dosage: UNK UNK, prn
     Dates: start: 20120531
  9. IMURAN [Concomitant]
     Dosage: 50 mg, qd
     Route: 048
     Dates: start: 20120531
  10. ADVAIR [Concomitant]
     Dosage: 2 DF, qd
     Dates: start: 20120531
  11. ASPIRIN [Concomitant]
     Dosage: 325 mg, qd
     Dates: start: 20120531
  12. FINASTERIDE [Concomitant]
     Dosage: 5 mg, qd
     Route: 048
     Dates: start: 20120621
  13. XOPENEX HFA [Concomitant]
     Dosage: 2 DF, unknown
     Dates: start: 20120705

REACTIONS (3)
  - Respiratory failure [Unknown]
  - Cardiac arrest [Unknown]
  - Death [Fatal]
